FAERS Safety Report 4621072-5 (Version None)
Quarter: 2005Q1

REPORT INFORMATION
  Report Type: 
  Country: None (occurrence: None)
  Receive Date: 20050328
  Receipt Date: 20050318
  Transmission Date: 20050727
  Serious: Yes (Death)
  Sender: FDA-Public Use
  Company Number: US-MERCK-0503USA03818

PATIENT
  Sex: Male

DRUGS (1)
  1. VIOXX [Suspect]
     Route: 048

REACTIONS (2)
  - ADVERSE EVENT [None]
  - INJURY [None]
